FAERS Safety Report 7476642-6 (Version None)
Quarter: 2011Q2

REPORT INFORMATION
  Report Type: 
  Country: None (occurrence: None)
  Receive Date: 20110512
  Receipt Date: 20110503
  Transmission Date: 20111010
  Serious: Yes (Other)
  Sender: FDA-Public Use
  Company Number: US-ASTRAZENECA-2011SE25528

PATIENT
  Age: 76 Year
  Sex: Female

DRUGS (10)
  1. COUMADIN [Concomitant]
  2. ASPIRIN [Concomitant]
  3. NEXIUM [Suspect]
     Indication: GASTROOESOPHAGEAL REFLUX DISEASE
     Route: 048
     Dates: start: 20030101
  4. PLETAL [Concomitant]
     Indication: PERIPHERAL ARTERIAL OCCLUSIVE DISEASE
  5. MESTINON [Concomitant]
     Indication: IMMUNE SYSTEM DISORDER
  6. NORVASC [Concomitant]
     Indication: HYPERTENSION
  7. SYNTHROID [Concomitant]
     Indication: HYPOTHYROIDISM
  8. PREDNISONE [Concomitant]
  9. CALCIUM [Concomitant]
  10. VITAMINS [Concomitant]

REACTIONS (7)
  - DIZZINESS [None]
  - MYASTHENIA GRAVIS [None]
  - OEDEMA PERIPHERAL [None]
  - COUGH [None]
  - PERIPHERAL ARTERIAL OCCLUSIVE DISEASE [None]
  - FEELING ABNORMAL [None]
  - DYSPEPSIA [None]
